FAERS Safety Report 8549894 (Version 3)
Quarter: 2013Q1

REPORT INFORMATION
  Report Type: Report from Study
  Country: FR (occurrence: FR)
  Receive Date: 20120507
  Receipt Date: 20130110
  Transmission Date: 20140127
  Serious: Yes (Hospitalization)
  Sender: FDA-Public Use
  Company Number: FR-CELGENEUS-056-21880-12042668

PATIENT
  Age: 79 Year
  Sex: Male
  Weight: 55 kg

DRUGS (14)
  1. REVLIMID [Suspect]
     Indication: PLASMA CELL MYELOMA
     Dosage: 15 MILLIGRAM
     Route: 048
     Dates: start: 20110902
  2. REVLIMID [Suspect]
     Dosage: 15 MILLIGRAM
     Route: 048
     Dates: start: 20120413
  3. REVLIMID [Suspect]
     Route: 048
     Dates: start: 20120319
  4. REVLIMID [Suspect]
     Dosage: 15 MILLIGRAM
     Route: 048
     Dates: start: 20120525, end: 20120601
  5. DEXAMETHASONE [Suspect]
     Indication: PLASMA CELL MYELOMA
     Route: 048
     Dates: start: 20110902, end: 20110922
  6. DEXAMETHASONE [Suspect]
     Route: 048
     Dates: start: 20111031, end: 20111120
  7. DEXAMETHASONE [Suspect]
     Route: 048
     Dates: start: 20120319
  8. DEXAMETHASONE [Suspect]
     Route: 048
     Dates: start: 20111128, end: 20111222
  9. DEXAMETHASONE [Suspect]
     Route: 048
     Dates: start: 20120315, end: 20120404
  10. ORACILLINE [Concomitant]
     Indication: PROPHYLAXIS
     Route: 065
  11. INEXIUM [Concomitant]
     Indication: DYSPEPSIA
     Route: 065
  12. TOPALGIC [Concomitant]
     Indication: BONE PAIN
     Route: 065
  13. LYRICA [Concomitant]
     Indication: BONE PAIN
     Route: 065
  14. ASPIRINE [Concomitant]
     Indication: PROPHYLAXIS
     Route: 048

REACTIONS (2)
  - Generalised oedema [Not Recovered/Not Resolved]
  - Generalised oedema [Recovered/Resolved]
